FAERS Safety Report 8118188-8 (Version None)
Quarter: 2012Q1

REPORT INFORMATION
  Report Type: 
  Country: None (occurrence: None)
  Receive Date: 20120131
  Receipt Date: 20120123
  Transmission Date: 20120608
  Serious: No
  Sender: FDA-Public Use
  Company Number: 2012SP004169

PATIENT
  Age: 61 Year
  Sex: Male
  Weight: 74 kg

DRUGS (5)
  1. SAPHRIS [Suspect]
     Indication: MANIA
     Dosage: 20 MG; QD
     Dates: start: 20120112, end: 20120117
  2. QUETIAPINE [Concomitant]
  3. VALPROATE SODIUM [Concomitant]
  4. ALBUTEROL SULFATE AUTOHALER [Concomitant]
  5. VALPROIC ACID [Concomitant]

REACTIONS (2)
  - DRUG HYPERSENSITIVITY [None]
  - OFF LABEL USE [None]
